FAERS Safety Report 25598770 (Version 1)
Quarter: 2025Q3

REPORT INFORMATION
  Report Type: Spontaneous
  Country: US (occurrence: US)
  Receive Date: 20250724
  Receipt Date: 20250724
  Transmission Date: 20251020
  Serious: Yes (Hospitalization)
  Sender: AMGEN
  Company Number: US-AMGEN-USASP2025141190

PATIENT
  Age: 74 Year
  Sex: Female

DRUGS (2)
  1. PREDNISONE [Suspect]
     Active Substance: PREDNISONE
     Indication: Pneumonia
     Route: 065
  2. AMOXICILLIN [Concomitant]
     Active Substance: AMOXICILLIN
     Indication: Pneumonia

REACTIONS (7)
  - Bronchial fistula [Recovering/Resolving]
  - Ecchymosis [Recovering/Resolving]
  - Pleural effusion [Recovering/Resolving]
  - Rib fracture [Recovering/Resolving]
  - Fracture [Recovering/Resolving]
  - Empyema [Recovering/Resolving]
  - Lung hernia [Recovering/Resolving]
